FAERS Safety Report 16359239 (Version 1)
Quarter: 2019Q2

REPORT INFORMATION
  Report Type: Spontaneous
  Country: US (occurrence: US)
  Receive Date: 20190527
  Receipt Date: 20190527
  Transmission Date: 20190711
  Serious: No
  Sender: FDA-Public Use
  Company Number: US-SA-2019SA140389

PATIENT
  Age: 36 Year
  Sex: Male

DRUGS (1)
  1. ADMELOG [Suspect]
     Active Substance: INSULIN LISPRO
     Indication: TYPE 1 DIABETES MELLITUS
     Dosage: 8 TO 20 UNITS
     Route: 065

REACTIONS (5)
  - Product selection error [Unknown]
  - Product measured potency issue [Unknown]
  - Product storage error [Unknown]
  - Drug ineffective [Unknown]
  - Blood glucose increased [Unknown]
